FAERS Safety Report 8292321-X (Version None)
Quarter: 2012Q2

REPORT INFORMATION
  Report Type: 
  Country: None (occurrence: None)
  Receive Date: 20120417
  Receipt Date: 20120410
  Transmission Date: 20120825
  Serious: No
  Sender: FDA-Public Use
  Company Number: US-BAYER-2012-036122

PATIENT
  Age: 64 Year
  Sex: Male
  Weight: 120 kg

DRUGS (3)
  1. LISINOPRIL [Concomitant]
  2. CRESTOR [Concomitant]
  3. ALEVE (CAPLET) [Suspect]
     Indication: ANALGESIC THERAPY
     Dosage: UNK
     Route: 048

REACTIONS (1)
  - PAIN [None]
